FAERS Safety Report 8138056 (Version 5)
Quarter: 2016Q1

REPORT INFORMATION
  Report Type: Report from Study
  Country: CA (occurrence: CA)
  Receive Date: 20110915
  Receipt Date: 20160324
  Transmission Date: 20160526
  Serious: Yes (Hospitalization, Other)
  Sender: FDA-Public Use
  Company Number: PHHY2009CA49176

PATIENT
  Age: 57 Year
  Sex: Female

DRUGS (3)
  1. SANDOSTATIN LAR DEPOT [Suspect]
     Active Substance: OCTREOTIDE ACETATE
     Indication: NEUROENDOCRINE CARCINOMA
     Dosage: 20 MG, QMO (EVERY 4 WEEKS)
     Route: 030
     Dates: start: 20090811
  2. INSULIN [Concomitant]
     Active Substance: INSULIN NOS
     Indication: PRODUCT USED FOR UNKNOWN INDICATION
     Dosage: UNK
     Route: 065
  3. HUMALOG MIX75/25 [Concomitant]
     Active Substance: INSULIN LISPRO
     Indication: PRODUCT USED FOR UNKNOWN INDICATION
     Dosage: 22 U, 30 MINTUES BEFORE BREAKFAST AND SUPPER
     Route: 065

REACTIONS (33)
  - Sepsis [Unknown]
  - Nephrolithiasis [Recovered/Resolved]
  - Abdominal discomfort [Unknown]
  - Pulmonary mass [Unknown]
  - Musculoskeletal pain [Unknown]
  - Blood pressure systolic increased [Unknown]
  - Nephrolithiasis [Unknown]
  - Heart rate increased [Unknown]
  - Gallbladder disorder [Unknown]
  - Diarrhoea [Unknown]
  - Hepatic enzyme increased [Unknown]
  - Pneumonia [Unknown]
  - Metastases to liver [Unknown]
  - Confusional state [Recovered/Resolved]
  - Telangiectasia [Unknown]
  - Disorientation [Unknown]
  - Neoplasm [Not Recovered/Not Resolved]
  - Cholelithiasis [Unknown]
  - Asterixis [Unknown]
  - Lethargy [Unknown]
  - Gastrointestinal motility disorder [Unknown]
  - Tenderness [Unknown]
  - Needle issue [Unknown]
  - Urinary tract infection [Unknown]
  - Tachycardia [Unknown]
  - Malignant neoplasm progression [Not Recovered/Not Resolved]
  - Biliary dilatation [Unknown]
  - Abdominal distension [Unknown]
  - Balance disorder [Unknown]
  - Abdominal pain [Unknown]
  - Hepatic encephalopathy [Unknown]
  - Abdominal pain upper [Unknown]
  - Pain [Unknown]

NARRATIVE: CASE EVENT DATE: 20110530
